FAERS Safety Report 7597903-6 (Version None)
Quarter: 2011Q3

REPORT INFORMATION
  Report Type: 
  Country: None (occurrence: None)
  Receive Date: 20110708
  Receipt Date: 20110630
  Transmission Date: 20111222
  Serious: Yes (Death, Hospitalization, Other)
  Sender: FDA-Public Use
  Company Number: JP-GENZYME-THYM-1002577

PATIENT
  Sex: Female
  Weight: 14 kg

DRUGS (15)
  1. THYMOGLOBULIN [Suspect]
     Indication: BONE MARROW CONDITIONING REGIMEN
     Dosage: 17 MG, QD
     Route: 042
     Dates: start: 20100607, end: 20100610
  2. CEFOZOPRAN HYDROCHLORIDE [Concomitant]
     Indication: INFECTION PROPHYLAXIS
     Dosage: UNK
     Route: 065
     Dates: start: 20100605, end: 20100613
  3. POLYETHYLENE GLYCOL TREATED HUMAN NORMAL IMMUNOGLOBULIN [Concomitant]
     Indication: INFECTION PROPHYLAXIS
     Dosage: UNK
     Route: 065
     Dates: start: 20100608, end: 20100719
  4. ETOPOSIDE [Concomitant]
     Indication: SHWACHMAN-DIAMOND SYNDROME
     Dosage: UNK
     Route: 065
     Dates: start: 20100611
  5. ACYCLOVIR [Concomitant]
     Indication: INFECTION PROPHYLAXIS
     Dosage: UNK
     Route: 065
     Dates: start: 20100607, end: 20100719
  6. MELPHALAN HYDROCHLORIDE [Concomitant]
     Indication: SHWACHMAN-DIAMOND SYNDROME
     Dosage: UNK
     Route: 065
     Dates: start: 20100611, end: 20100615
  7. DALTEPARIN SODIUM [Concomitant]
     Indication: VENOOCCLUSIVE DISEASE
     Dosage: UNK
     Route: 065
     Dates: start: 20100606, end: 20100719
  8. VORICONAZOLE [Concomitant]
     Indication: BRONCHOPULMONARY ASPERGILLOSIS
     Dosage: UNK
     Route: 065
     Dates: start: 20100219, end: 20100719
  9. LENOGRASTIM [Concomitant]
     Indication: SHWACHMAN-DIAMOND SYNDROME
     Dosage: UNK
     Route: 065
     Dates: start: 20100620, end: 20100713
  10. METHOTREXATE [Concomitant]
     Indication: PROPHYLAXIS AGAINST GRAFT VERSUS HOST DISEASE
     Dosage: UNK
     Route: 065
     Dates: start: 20100616, end: 20100621
  11. METHYLPREDNISOLONE SODIUM SUCCINATE [Concomitant]
     Indication: PREMEDICATION
     Dosage: UNK
     Route: 065
     Dates: start: 20100607, end: 20100615
  12. RAMOSETRON HYDROCHLORIDE [Concomitant]
     Indication: PROPHYLAXIS OF NAUSEA AND VOMITING
     Dosage: UNK
     Route: 065
     Dates: start: 20100609, end: 20100614
  13. FAMOTIDINE [Concomitant]
     Indication: PROPHYLAXIS AGAINST GASTROINTESTINAL ULCER
     Dosage: UNK
     Route: 065
     Dates: start: 20100612, end: 20100719
  14. TACROLIMUS [Concomitant]
     Indication: PROPHYLAXIS AGAINST GRAFT VERSUS HOST DISEASE
     Dosage: UNK
     Route: 065
     Dates: start: 20100615, end: 20100622
  15. PREDNISOLONE SODIUM SUCCINATE INJ [Concomitant]
     Indication: PROPHYLAXIS AGAINST GRAFT VERSUS HOST DISEASE
     Dosage: UNK
     Route: 065
     Dates: start: 20100628, end: 20100719

REACTIONS (6)
  - FEBRILE NEUTROPENIA [None]
  - ACUTE GRAFT VERSUS HOST DISEASE IN INTESTINE [None]
  - ACUTE GRAFT VERSUS HOST DISEASE IN LIVER [None]
  - DISSEMINATED INTRAVASCULAR COAGULATION [None]
  - RENAL FAILURE ACUTE [None]
  - ABDOMINAL PAIN [None]
